FAERS Safety Report 5974328-8 (Version None)
Quarter: 2008Q4

REPORT INFORMATION
  Report Type: 
  Country: None (occurrence: None)
  Receive Date: 20081128
  Receipt Date: 20081114
  Transmission Date: 20090506
  Serious: Yes (Death, Hospitalization)
  Sender: FDA-Public Use
  Company Number: I02-341-004

PATIENT
  Age: 57 Year
  Sex: Male
  Weight: 79 kg

DRUGS (14)
  1. VELCADE [Suspect]
     Indication: PROSTATE CANCER
     Dosage: 1.5 MG/M2 DAY 1,4,8, 11 X2 COURSE, IV BOLUS
     Route: 040
     Dates: start: 20011210
  2. BETA C [Concomitant]
  3. CLONAZEPAM [Concomitant]
  4. COLACE [Concomitant]
  5. COMPAZINE [Concomitant]
  6. LACTULOSE [Concomitant]
  7. FISH OIL [Concomitant]
  8. MULTI-VITAMINS [Concomitant]
  9. OXYCONTIN [Concomitant]
  10. PENTA-CAL-PLUS [Concomitant]
  11. PERCOCET [Concomitant]
  12. TYLENOL (CAPLET) [Concomitant]
  13. VIOXX [Concomitant]
  14. DOXORUBICIN HCL [Suspect]

REACTIONS (5)
  - CEREBRAL INFARCTION [None]
  - DISEASE PROGRESSION [None]
  - ENCEPHALITIS [None]
  - ENCEPHALOPATHY [None]
  - MEMORY IMPAIRMENT [None]
